FAERS Safety Report 19100288 (Version 1)
Quarter: 2021Q2

REPORT INFORMATION
  Report Type: Report from Study
  Country: US (occurrence: US)
  Receive Date: 20210407
  Receipt Date: 20210407
  Transmission Date: 20210717
  Serious: Yes (Other)
  Sender: FDA-Public Use
  Company Number: US-AUROBINDO-AUR-APL-2021-013574

PATIENT

DRUGS (6)
  1. LEVOFLOXACIN. [Suspect]
     Active Substance: LEVOFLOXACIN
     Indication: BACILLUS INFECTION
     Dosage: UNK
     Route: 065
  2. MEROPENEM. [Suspect]
     Active Substance: MEROPENEM
     Indication: BACILLUS INFECTION
     Dosage: UNK
     Route: 065
  3. METRONIDAZOLE. [Suspect]
     Active Substance: METRONIDAZOLE
     Indication: BACILLUS INFECTION
     Dosage: UNK
     Route: 065
  4. PIPERACILLIN AND TAZOBACTAM [Suspect]
     Active Substance: PIPERACILLIN SODIUM\TAZOBACTAM SODIUM
     Indication: BACILLUS INFECTION
     Dosage: UNK
     Route: 065
  5. DAPTOMYCIN. [Suspect]
     Active Substance: DAPTOMYCIN
     Indication: BACILLUS INFECTION
     Dosage: UNK
     Route: 065
  6. VANCOMYCIN [Suspect]
     Active Substance: VANCOMYCIN
     Indication: BACILLUS INFECTION
     Dosage: UNK
     Route: 065

REACTIONS (2)
  - Leukopenia [Unknown]
  - Hypersensitivity [Unknown]
